FAERS Safety Report 11146476 (Version 1)
Quarter: 2015Q2

REPORT INFORMATION
  Report Type: Spontaneous
  Country: JP (occurrence: None)
  Receive Date: 20150526
  Receipt Date: 20150526
  Transmission Date: 20150821
  Serious: Yes (Hospitalization)
  Sender: FDA-Public Use
  Company Number: JP-ZYDUS-008084

PATIENT
  Age: 71 Year
  Sex: Female

DRUGS (3)
  1. PEGINTERFERON (PEGINTERFERON) [Suspect]
     Active Substance: PEGINTERFERON ALFA-2A OR PEGINTERFERON ALFA-2B
  2. SIMEPREVIR (SIMEPREVIR) [Suspect]
     Active Substance: SIMEPREVIR
  3. RIBAVIRIN. [Suspect]
     Active Substance: RIBAVIRIN

REACTIONS (1)
  - Chorea [None]
